FAERS Safety Report 4400900-2 (Version None)
Quarter: 2004Q3

REPORT INFORMATION
  Report Type: 
  Country: None (occurrence: None)
  Receive Date: 20040907
  Receipt Date: 20030731
  Transmission Date: 20050211
  Serious: Yes (Death, Hospitalization)
  Sender: FDA-Public Use
  Company Number: US-BRISTOL-MYERS SQUIBB COMPANY-12342358

PATIENT
  Sex: Male

DRUGS (1)
  1. COUMADIN [Suspect]
     Dosage: PREVIOUS DOSE: TABLET POSSIBLY STAMPED ^2 MG DUPONT^

REACTIONS (1)
  - COAGULOPATHY [None]
